FAERS Safety Report 9929377 (Version 2)
Quarter: 2014Q1

REPORT INFORMATION
  Report Type: Report from Study
  Country: US (occurrence: US)
  Receive Date: 20140227
  Receipt Date: 20140227
  Transmission Date: 20141002
  Serious: No
  Sender: FDA-Public Use
  Company Number: PHEH2013US025595

PATIENT
  Sex: Female

DRUGS (7)
  1. TASIGNA [Suspect]
     Indication: CHRONIC MYELOID LEUKAEMIA
     Dosage: 150 MG, BID
     Route: 048
     Dates: start: 201208
  2. CLARITIN [Concomitant]
     Dosage: 10 MG
  3. LYRICA [Concomitant]
     Dosage: 200 MG
  4. HYDROCODONE W/APAP [Concomitant]
     Indication: PAIN
     Dosage: 5/325, PRN
  5. OMEPRAZOLE [Concomitant]
     Dosage: 40 MG
  6. ZOFRAN [Concomitant]
     Indication: NAUSEA
     Dosage: 08 MG, PRN
  7. PROCHLORPERAZINE [Concomitant]
     Dosage: UNK UKN, UNK

REACTIONS (4)
  - Rash [Not Recovered/Not Resolved]
  - Pain of skin [Unknown]
  - Skin exfoliation [Unknown]
  - Dry skin [Unknown]
